FAERS Safety Report 21208191 (Version 3)
Quarter: 2022Q4

REPORT INFORMATION
  Report Type: Spontaneous
  Country: US (occurrence: US)
  Receive Date: 20220812
  Receipt Date: 20221116
  Transmission Date: 20230113
  Serious: No
  Sender: FDA-Public Use
  Company Number: US-JNJFOC-20220822896

PATIENT
  Age: 68 Year
  Sex: Female
  Weight: 67.646 kg

DRUGS (7)
  1. STELARA [Suspect]
     Active Substance: USTEKINUMAB
     Indication: Crohn^s disease
     Route: 040
     Dates: start: 20220727
  2. STELARA [Suspect]
     Active Substance: USTEKINUMAB
     Route: 040
  3. ELIQUIS [Concomitant]
     Active Substance: APIXABAN
  4. MESALAMINE [Concomitant]
     Active Substance: MESALAMINE
  5. FENOFIBRATE [Concomitant]
     Active Substance: FENOFIBRATE
  6. TOLTERODINE [Concomitant]
     Active Substance: TOLTERODINE
  7. ERGOCALCIFEROL [Concomitant]
     Active Substance: ERGOCALCIFEROL

REACTIONS (2)
  - Dyspnoea [Recovered/Resolved]
  - Flank pain [Recovered/Resolved]

NARRATIVE: CASE EVENT DATE: 20220727
